FAERS Safety Report 25956622 (Version 1)
Quarter: 2025Q4

REPORT INFORMATION
  Report Type: Other
  Country: KR (occurrence: KR)
  Receive Date: 20251024
  Receipt Date: 20251024
  Transmission Date: 20260117
  Serious: Yes (Other)
  Sender: PRASCO
  Company Number: KR-Prasco Laboratories-PRAS20250362

PATIENT

DRUGS (3)
  1. DEXAMETHASONE [Suspect]
     Active Substance: DEXAMETHASONE
     Indication: Plasma cell myeloma refractory
     Dosage: 40 MG ONCE A WEEK
     Route: 048
  2. POMALIDOMIDE [Suspect]
     Active Substance: POMALIDOMIDE
     Indication: Plasma cell myeloma refractory
     Dosage: DAYS 1-21
     Route: 048
  3. CYCLOPHOSPHAMIDE [Suspect]
     Active Substance: CYCLOPHOSPHAMIDE
     Indication: Plasma cell myeloma refractory
     Dosage: 400 MG ONCE WEEKLY FOR THREE WEEKS ON DAYS 1, 8 AND 15
     Route: 048

REACTIONS (1)
  - Deep vein thrombosis [Unknown]
